FAERS Safety Report 16283281 (Version 2)
Quarter: 2019Q4

REPORT INFORMATION
  Report Type: Spontaneous
  Country: US (occurrence: US)
  Receive Date: 20190507
  Receipt Date: 20191029
  Transmission Date: 20200122
  Serious: Yes (Other)
  Sender: FDA-Public Use
  Company Number: US-ASTRAZENECA-2019SE09835

PATIENT
  Age: 17683 Day
  Sex: Female
  Weight: 99.3 kg

DRUGS (46)
  1. PRILOSEC [Suspect]
     Active Substance: OMEPRAZOLE MAGNESIUM
     Indication: GASTROOESOPHAGEAL REFLUX DISEASE
     Route: 048
  2. ACETAMINOPHEN. [Concomitant]
     Active Substance: ACETAMINOPHEN
  3. NAPRELAN [Concomitant]
     Active Substance: NAPROXEN SODIUM
  4. NAPROXEN. [Concomitant]
     Active Substance: NAPROXEN
  5. CODEINE [Concomitant]
     Active Substance: CODEINE
  6. TRAMADOL. [Concomitant]
     Active Substance: TRAMADOL
  7. ESTRADIOL. [Concomitant]
     Active Substance: ESTRADIOL
  8. AMOXICILLIN. [Concomitant]
     Active Substance: AMOXICILLIN
  9. ONDANSETRON [Concomitant]
     Active Substance: ONDANSETRON
  10. DIOVAN [Concomitant]
     Active Substance: VALSARTAN
  11. CELEBREX [Concomitant]
     Active Substance: CELECOXIB
  12. HYOSCYAMINE. [Concomitant]
     Active Substance: HYOSCYAMINE
  13. LEVOFLOXACIN. [Concomitant]
     Active Substance: LEVOFLOXACIN
  14. LORAZEPAM. [Concomitant]
     Active Substance: LORAZEPAM
  15. OXYCODONE [Concomitant]
     Active Substance: OXYCODONE
  16. SIMVASTATIN. [Concomitant]
     Active Substance: SIMVASTATIN
  17. AZITHROMYCIN ANHYDROUS. [Concomitant]
     Active Substance: AZITHROMYCIN ANHYDROUS
  18. METRONIDAZOLE. [Concomitant]
     Active Substance: METRONIDAZOLE
  19. HYDROXYZINE [Concomitant]
     Active Substance: HYDROXYZINE HYDROCHLORIDE
  20. ALBUTEROL. [Concomitant]
     Active Substance: ALBUTEROL
  21. PIOGLITAZONE. [Concomitant]
     Active Substance: PIOGLITAZONE
  22. SERTRALINE [Concomitant]
     Active Substance: SERTRALINE HYDROCHLORIDE
  23. TRAZODONE [Concomitant]
     Active Substance: TRAZODONE HYDROCHLORIDE
  24. PRILOSEC [Suspect]
     Active Substance: OMEPRAZOLE MAGNESIUM
     Indication: GASTROOESOPHAGEAL REFLUX DISEASE
     Route: 065
     Dates: start: 2016, end: 2018
  25. CIPROFLOXACIN. [Concomitant]
     Active Substance: CIPROFLOXACIN
  26. AVANDAMET [Concomitant]
     Active Substance: METFORMIN HYDROCHLORIDE\ROSIGLITAZONE MALEATE
  27. TANZEUM [Concomitant]
     Active Substance: ALBIGLUTIDE
  28. FLUCONAZOLE. [Concomitant]
     Active Substance: FLUCONAZOLE
  29. CYCLOBENZAPRINE. [Concomitant]
     Active Substance: CYCLOBENZAPRINE
  30. DOXYCYCLINE. [Concomitant]
     Active Substance: DOXYCYCLINE
  31. GLIPIZIDE. [Concomitant]
     Active Substance: GLIPIZIDE
  32. CLARITHROMYCIN. [Concomitant]
     Active Substance: CLARITHROMYCIN
  33. MONTELUKAST [Concomitant]
     Active Substance: MONTELUKAST SODIUM
  34. OLOPATADINE. [Concomitant]
     Active Substance: OLOPATADINE
  35. IBUPROFEN. [Concomitant]
     Active Substance: IBUPROFEN
  36. NEXIUM [Suspect]
     Active Substance: ESOMEPRAZOLE MAGNESIUM
     Route: 048
  37. PREVACID [Suspect]
     Active Substance: LANSOPRAZOLE
     Route: 065
  38. NOVOLOG [Concomitant]
     Active Substance: INSULIN ASPART
  39. CYMBALTA [Concomitant]
     Active Substance: DULOXETINE HYDROCHLORIDE
  40. PREDNISONE. [Concomitant]
     Active Substance: PREDNISONE
  41. METFORMIN [Concomitant]
     Active Substance: METFORMIN HYDROCHLORIDE
  42. METOCLOPRAMIDE. [Concomitant]
     Active Substance: METOCLOPRAMIDE
  43. JANUVIA [Concomitant]
     Active Substance: SITAGLIPTIN PHOSPHATE
  44. DIAZEPAM. [Concomitant]
     Active Substance: DIAZEPAM
  45. PRILOSEC [Suspect]
     Active Substance: OMEPRAZOLE MAGNESIUM
     Indication: GASTROOESOPHAGEAL REFLUX DISEASE
     Dosage: 20 MG
     Route: 065
     Dates: start: 2010, end: 2011
  46. ALPRAZOLAM. [Concomitant]
     Active Substance: ALPRAZOLAM

REACTIONS (5)
  - Renal failure [Unknown]
  - Acute kidney injury [Unknown]
  - Rebound acid hypersecretion [Unknown]
  - Chronic kidney disease [Unknown]
  - Renal injury [Unknown]

NARRATIVE: CASE EVENT DATE: 20140613
